FAERS Safety Report 5269458-2 (Version None)
Quarter: 2007Q1

REPORT INFORMATION
  Report Type: 
  Country: None (occurrence: None)
  Receive Date: 20070320
  Receipt Date: 20070313
  Transmission Date: 20070707
  Serious: Yes (Other)
  Sender: FDA-Public Use
  Company Number: CH-ELI_LILLY_AND_COMPANY-CH200702003921

PATIENT
  Age: 58 Year
  Sex: Female

DRUGS (5)
  1. ZYPREXA [Suspect]
     Indication: BIPOLAR DISORDER
     Dosage: 5 MG, DAILY (1/D)
     Route: 048
     Dates: start: 20061026, end: 20061028
  2. ZYPREXA [Suspect]
     Dosage: 7.5 MG, DAILY (1/D)
     Route: 048
     Dates: start: 20061029, end: 20061101
  3. ZYPREXA [Suspect]
     Dosage: 10 MG, DAILY (1/D)
     Route: 048
     Dates: start: 20061102, end: 20061107
  4. ZYPREXA [Suspect]
     Dosage: 5 MG, DAILY (1/D)
     Route: 048
     Dates: start: 20061108, end: 20061109
  5. SOLU-MEDROL [Concomitant]
     Dosage: UNK, UNK
     Route: 042
     Dates: end: 20061022

REACTIONS (2)
  - LEUKOPENIA [None]
  - TRANSAMINASES INCREASED [None]
